FAERS Safety Report 5072097-X (Version None)
Quarter: 2006Q3

REPORT INFORMATION
  Report Type: 
  Country: None (occurrence: None)
  Receive Date: 20060807
  Receipt Date: 20060622
  Transmission Date: 20061208
  Serious: Yes (Life-Threatening, Hospitalization)
  Sender: FDA-Public Use
  Company Number: CH-BRISTOL-MYERS SQUIBB COMPANY-13420526

PATIENT
  Age: 51 Year
  Sex: Male
  Weight: 63 kg

DRUGS (6)
  1. CISPLATIN [Suspect]
     Indication: LIP AND/OR ORAL CAVITY CANCER STAGE 0
     Route: 041
     Dates: start: 20060509, end: 20060513
  2. CISPLATIN [Suspect]
     Indication: OESOPHAGEAL CARCINOMA STAGE 0
     Route: 041
     Dates: start: 20060509, end: 20060513
  3. CISPLATIN [Suspect]
     Indication: GASTRIC CANCER STAGE 0
     Route: 041
     Dates: start: 20060509, end: 20060513
  4. FLUOROURACIL [Suspect]
     Indication: LIP AND/OR ORAL CAVITY CANCER STAGE 0
     Route: 041
     Dates: start: 20060509, end: 20060513
  5. FLUOROURACIL [Suspect]
     Indication: OESOPHAGEAL CARCINOMA STAGE 0
     Route: 041
     Dates: start: 20060509, end: 20060513
  6. FLUOROURACIL [Suspect]
     Indication: GASTRIC CANCER STAGE 0
     Route: 041
     Dates: start: 20060509, end: 20060513

REACTIONS (7)
  - ABDOMINAL PAIN [None]
  - AGRANULOCYTOSIS [None]
  - DIARRHOEA [None]
  - MUCOSAL INFLAMMATION [None]
  - NAUSEA [None]
  - PANCYTOPENIA [None]
  - SEPSIS [None]
